FAERS Safety Report 6359321-8 (Version None)
Quarter: 2009Q3

REPORT INFORMATION
  Report Type: 
  Country: None (occurrence: None)
  Receive Date: 20090914
  Receipt Date: 20090828
  Transmission Date: 20100115
  Serious: Yes (Death, Other)
  Sender: FDA-Public Use
  Company Number: GB-2008-0694

PATIENT
  Age: 31 Year
  Sex: Male

DRUGS (6)
  1. VINORELBINE [Suspect]
     Indication: ACUTE MYELOID LEUKAEMIA
     Dosage: 20 MG/M2 UNK IV
     Route: 042
  2. GEMCITABINE [Suspect]
     Indication: BURKITT'S LYMPHOMA
     Dosage: 3600 MG/M2 IV
     Route: 042
  3. TOPOTECAN [Suspect]
     Indication: BURKITT'S LYMPHOMA
     Dosage: 1 MG/M2 IV
     Route: 042
  4. THIOTEPA [Suspect]
     Indication: BURKITT'S LYMPHOMA
     Dosage: 15 MG/M2 IV
     Route: 042
  5. DEXAMETHASONE 4MG TAB [Concomitant]
  6. NEUPOGEN [Concomitant]

REACTIONS (3)
  - NEUTROPENIA [None]
  - PNEUMONIA [None]
  - THROMBOCYTOPENIA [None]
